FAERS Safety Report 17788344 (Version 1)
Quarter: 2020Q2

REPORT INFORMATION
  Report Type: Spontaneous
  Country: US (occurrence: US)
  Receive Date: 20200515
  Receipt Date: 20200515
  Transmission Date: 20200714
  Serious: No
  Sender: FDA-Public Use
  Company Number: US-CADILA HEALTHCARE LIMITED-US-ZYDUS-047190

PATIENT

DRUGS (1)
  1. SPIRONOLACTONE. [Suspect]
     Active Substance: SPIRONOLACTONE
     Indication: PRODUCT USED FOR UNKNOWN INDICATION
     Dosage: FREQUENCY :UNKNOWN
     Route: 065

REACTIONS (11)
  - Erectile dysfunction [Unknown]
  - Musculoskeletal pain [Unknown]
  - Emotional distress [Unknown]
  - Paraesthesia [Unknown]
  - Hyperhidrosis [Unknown]
  - Headache [Unknown]
  - Muscle spasms [Unknown]
  - Penis injury [Unknown]
  - Pain in extremity [Unknown]
  - Penis disorder [Unknown]
  - Muscle disorder [Unknown]
